FAERS Safety Report 10980448 (Version 2)
Quarter: 2015Q2

REPORT INFORMATION
  Report Type: Spontaneous
  Country: US (occurrence: US)
  Receive Date: 20150402
  Receipt Date: 20150525
  Transmission Date: 20150821
  Serious: No
  Sender: FDA-Public Use
  Company Number: US-JNJFOC-20130813201

PATIENT
  Sex: Male
  Weight: 83.92 kg

DRUGS (3)
  1. LEVOTHYROXINE [Concomitant]
     Active Substance: LEVOTHYROXINE
     Indication: THYROID DISORDER
     Route: 065
  2. IMODIUM MULTI-SYMPTOM RELIEF [Suspect]
     Active Substance: DIMETHICONE\LOPERAMIDE HYDROCHLORIDE
     Route: 048
  3. IMODIUM MULTI-SYMPTOM RELIEF [Suspect]
     Active Substance: DIMETHICONE\LOPERAMIDE HYDROCHLORIDE
     Indication: FAECES SOFT
     Route: 048

REACTIONS (1)
  - Drug ineffective [Unknown]
